FAERS Safety Report 16585505 (Version 2)
Quarter: 2019Q3

REPORT INFORMATION
  Report Type: Spontaneous
  Country: US (occurrence: US)
  Receive Date: 20190717
  Receipt Date: 20190731
  Transmission Date: 20191004
  Serious: Yes (Other)
  Sender: FDA-Public Use
  Company Number: US-ACTELION-A-NJ2019-192912

PATIENT
  Sex: Male
  Weight: 140.14 kg

DRUGS (1)
  1. OPSUMIT [Suspect]
     Active Substance: MACITENTAN
     Indication: PULMONARY ARTERIAL HYPERTENSION
     Dosage: 10 MG, QD
     Route: 048
     Dates: start: 20190620

REACTIONS (6)
  - Haemorrhage [Unknown]
  - Tooth infection [Unknown]
  - Tooth extraction [Unknown]
  - Musculoskeletal pain [Unknown]
  - Neck pain [Unknown]
  - Surgery [Unknown]
